FAERS Safety Report 15006044 (Version 1)
Quarter: 2020Q3

REPORT INFORMATION
  Report Type: Report from Study
  Country: ES (occurrence: ES)
  Receive Date: 20180613
  Receipt Date: 20180613
  Transmission Date: 20201104
  Serious: Yes (Hospitalization)
  Sender: FDA-Public Use
  Company Number: ES-JNJFOC-20150822864

PATIENT
  Age: 78 Year
  Sex: Male
  Weight: 79.9 kg

DRUGS (10)
  1. ROSUVASTATINA [Concomitant]
     Active Substance: ROSUVASTATIN
     Route: 065
     Dates: start: 20131001
  2. EPLERENONE. [Concomitant]
     Active Substance: EPLERENONE
     Route: 065
     Dates: start: 20131001
  3. BRILIQUE [Concomitant]
     Active Substance: TICAGRELOR
     Route: 065
     Dates: start: 20130922, end: 20150827
  4. RIVAROXABAN [Suspect]
     Active Substance: RIVAROXABAN
     Indication: CARDIAC FAILURE
     Route: 048
     Dates: start: 20150603, end: 20150827
  5. FUROSEMIDE. [Concomitant]
     Active Substance: FUROSEMIDE
     Route: 065
     Dates: start: 20131112
  6. RIVAROXABAN [Suspect]
     Active Substance: RIVAROXABAN
     Route: 048
  7. ADIRO [Concomitant]
     Active Substance: ASPIRIN
     Route: 065
     Dates: start: 20130922, end: 20150907
  8. EMCONCOR COR [Concomitant]
     Active Substance: BISOPROLOL
     Route: 065
     Dates: start: 20131031
  9. DIAFUSOR [Concomitant]
     Active Substance: NITROGLYCERIN
     Route: 065
     Dates: start: 20141007
  10. ENOXAPARIN [Concomitant]
     Active Substance: ENOXAPARIN
     Route: 065
     Dates: start: 20150908

REACTIONS (1)
  - Anaemia [Recovering/Resolving]

NARRATIVE: CASE EVENT DATE: 20150826
